FAERS Safety Report 19651261 (Version 1)
Quarter: 2021Q3

REPORT INFORMATION
  Report Type: Spontaneous
  Country: US (occurrence: US)
  Receive Date: 20210803
  Receipt Date: 20210803
  Transmission Date: 20211014
  Serious: Yes (Hospitalization)
  Sender: FDA-Public Use
  Company Number: None

PATIENT
  Age: 40 Year
  Sex: Female
  Weight: 89.1 kg

DRUGS (7)
  1. WEGOVY [Suspect]
     Active Substance: SEMAGLUTIDE
     Indication: OBESITY
     Dosage: ?          QUANTITY:1 INJECTION(S);OTHER FREQUENCY:1X WEEK;?
     Route: 058
     Dates: start: 20210729, end: 20210729
  2. LEXAPRO [Concomitant]
     Active Substance: ESCITALOPRAM OXALATE
  3. PROGESTERONE. [Concomitant]
     Active Substance: PROGESTERONE
  4. VYVANNSE [Concomitant]
  5. ESTROGEN PATCH [Concomitant]
     Active Substance: ESTRADIOL
  6. ATORVASTIN [Concomitant]
     Active Substance: ATORVASTATIN
  7. SYNJARDY XR [Concomitant]
     Active Substance: EMPAGLIFLOZIN\METFORMIN HYDROCHLORIDE

REACTIONS (1)
  - Vomiting [None]

NARRATIVE: CASE EVENT DATE: 20210801
